FAERS Safety Report 26087873 (Version 1)
Quarter: 2025Q4

REPORT INFORMATION
  Report Type: Spontaneous
  Country: US (occurrence: None)
  Receive Date: 20251125
  Receipt Date: 20251125
  Transmission Date: 20260118
  Serious: Yes (Hospitalization)
  Sender: FDA-CTU
  Company Number: None

PATIENT
  Age: 63 Year
  Sex: Female

DRUGS (2)
  1. BOSULIF [Suspect]
     Active Substance: BOSUTINIB MONOHYDRATE
     Indication: Philadelphia positive chronic myeloid leukaemia
     Dosage: 400 MG DAILY ORAL
     Route: 048
     Dates: start: 20251027
  2. GLEEVEC [Concomitant]
     Active Substance: IMATINIB MESYLATE

REACTIONS (8)
  - Diarrhoea [None]
  - Gastrooesophageal reflux disease [None]
  - Renal failure [None]
  - Yellow skin [None]
  - Ocular icterus [None]
  - Chromaturia [None]
  - Therapy interrupted [None]
  - Vomiting [None]

NARRATIVE: CASE EVENT DATE: 20251119
